FAERS Safety Report 25370019 (Version 1)
Quarter: 2025Q2

REPORT INFORMATION
  Report Type: Spontaneous
  Country: GB (occurrence: GB)
  Receive Date: 20250528
  Receipt Date: 20250528
  Transmission Date: 20250717
  Serious: Yes (Other)
  Sender: PFIZER
  Company Number: GB-009507513-2286447

PATIENT
  Age: 65 Year
  Sex: Female

DRUGS (12)
  1. PACLITAXEL [Suspect]
     Active Substance: PACLITAXEL
  2. PACLITAXEL [Suspect]
     Active Substance: PACLITAXEL
  3. PACLITAXEL [Suspect]
     Active Substance: PACLITAXEL
  4. PACLITAXEL [Suspect]
     Active Substance: PACLITAXEL
  5. CARBOPLATIN [Suspect]
     Active Substance: CARBOPLATIN
  6. CARBOPLATIN [Suspect]
     Active Substance: CARBOPLATIN
  7. CARBOPLATIN [Suspect]
     Active Substance: CARBOPLATIN
  8. CARBOPLATIN [Suspect]
     Active Substance: CARBOPLATIN
  9. KEYTRUDA [Suspect]
     Active Substance: PEMBROLIZUMAB
  10. KEYTRUDA [Suspect]
     Active Substance: PEMBROLIZUMAB
  11. KEYTRUDA [Suspect]
     Active Substance: PEMBROLIZUMAB
  12. KEYTRUDA [Suspect]
     Active Substance: PEMBROLIZUMAB

REACTIONS (4)
  - Uveitis [Recovering/Resolving]
  - Pneumonia [Unknown]
  - Diarrhoea [Unknown]
  - Hypersensitivity [Unknown]
